FAERS Safety Report 17911462 (Version 1)
Quarter: 2020Q2

REPORT INFORMATION
  Report Type: Spontaneous
  Country: US (occurrence: US)
  Receive Date: 20200617
  Receipt Date: 20200617
  Transmission Date: 20200714
  Serious: Yes (Death)
  Sender: FDA-Public Use
  Company Number: None

PATIENT
  Age: 52 Year
  Sex: Male
  Weight: 69.85 kg

DRUGS (1)
  1. REMDESIVIR EUA [Suspect]
     Active Substance: REMDESIVIR
     Indication: COVID-19 PNEUMONIA
     Route: 042

REACTIONS (3)
  - Ventricular tachycardia [None]
  - Pulse absent [None]
  - Death [None]

NARRATIVE: CASE EVENT DATE: 20200611
